FAERS Safety Report 5914556-0 (Version None)
Quarter: 2008Q4

REPORT INFORMATION
  Report Type: 
  Country: None (occurrence: None)
  Receive Date: 20081008
  Receipt Date: 20080924
  Transmission Date: 20090506
  Serious: Yes (Death, Hospitalization)
  Sender: FDA-Public Use
  Company Number: 2008SP002178

PATIENT
  Age: 79 Year
  Sex: Female
  Weight: 70.3 kg

DRUGS (13)
  1. XOPENEX [Suspect]
     Dosage: 1.25 MG/3ML;Q2H;INHALATION, 0.63 MG/3ML;INHALATION
     Route: 055
     Dates: start: 20030806, end: 20030808
  2. XOPENEX [Suspect]
     Dosage: 1.25 MG/3ML;Q2H;INHALATION, 0.63 MG/3ML;INHALATION
     Route: 055
     Dates: start: 20030808
  3. ATROVENT [Suspect]
     Dosage: Q4H
     Dates: start: 20030806
  4. LASIX [Concomitant]
  5. XANAX [Concomitant]
  6. DIGOXIN [Concomitant]
  7. THEO-DUR [Concomitant]
  8. LORTAB [Concomitant]
  9. OXYGEN [Concomitant]
  10. ZANTAC [Concomitant]
  11. HYDROCODONE BITARTRATE [Concomitant]
  12. CEFTIN [Concomitant]
  13. INFLUENZA VACCINE [Concomitant]

REACTIONS (18)
  - AGITATION [None]
  - BACK PAIN [None]
  - BLOOD PH DECREASED [None]
  - BLOOD PRESSURE SYSTOLIC DECREASED [None]
  - BRONCHITIS [None]
  - CANDIDIASIS [None]
  - CARDIAC FAILURE [None]
  - CARDIOACTIVE DRUG LEVEL ABOVE THERAPEUTIC [None]
  - COMA [None]
  - ENCEPHALOPATHY [None]
  - HYPOTENSION [None]
  - LETHARGY [None]
  - PLEURAL EFFUSION [None]
  - PRODUCTIVE COUGH [None]
  - RESPIRATORY FAILURE [None]
  - RESPIRATORY RATE INCREASED [None]
  - STUPOR [None]
  - THERAPEUTIC AGENT TOXICITY [None]
